FAERS Safety Report 25031778 (Version 1)
Quarter: 2025Q1

REPORT INFORMATION
  Report Type: Spontaneous
  Country: US (occurrence: None)
  Receive Date: 20250302
  Receipt Date: 20250302
  Transmission Date: 20250409
  Serious: No
  Sender: FDA-CTU
  Company Number: None

PATIENT
  Age: 31 Year
  Sex: Female
  Weight: 94.5 kg

DRUGS (3)
  1. CIPROFLOXACIN HYDROCHLORIDE [Suspect]
     Active Substance: CIPROFLOXACIN HYDROCHLORIDE
     Indication: Irritable bowel syndrome
     Dosage: OTHER QUANTITY : 28 TABLET(S);?FREQUENCY : TWICE A DAY;?
     Route: 048
     Dates: start: 20250219, end: 20250302
  2. BENTYL [Concomitant]
     Active Substance: DICYCLOMINE HYDROCHLORIDE
  3. women^s multivitamin [Concomitant]

REACTIONS (3)
  - Migraine [None]
  - Neuropathy peripheral [None]
  - Tendon injury [None]

NARRATIVE: CASE EVENT DATE: 20250302
